FAERS Safety Report 9257052 (Version 2)
Quarter: 2013Q2

REPORT INFORMATION
  Report Type: Spontaneous
  Country: US (occurrence: US)
  Receive Date: 20130426
  Receipt Date: 20130613
  Transmission Date: 20140414
  Serious: Yes (Hospitalization, Other)
  Sender: FDA-Public Use
  Company Number: US-BAYER-2013-050126

PATIENT
  Age: 36 Year
  Sex: Female
  Weight: 64.4 kg

DRUGS (4)
  1. MIRENA [Suspect]
     Indication: CONTRACEPTION
     Dosage: 20 MCG/24HR, CONT
     Route: 015
     Dates: start: 201303, end: 20130402
  2. VITAMIN C [Concomitant]
     Dosage: UNK UNK, QD
  3. B12 [Concomitant]
     Dosage: UNK UNK, QD
  4. BIOTONIN [Concomitant]

REACTIONS (3)
  - Device dislocation [Recovered/Resolved]
  - Uterine neoplasm [Recovered/Resolved]
  - Device difficult to use [None]
